FAERS Safety Report 19731317 (Version 2)
Quarter: 2021Q3

REPORT INFORMATION
  Report Type: Spontaneous
  Country: DE (occurrence: DE)
  Receive Date: 20210820
  Receipt Date: 20210820
  Transmission Date: 20211014
  Serious: Yes (Other)
  Sender: FDA-Public Use
  Company Number: DE-JAZZ-2020-DE-016068

PATIENT
  Age: 75 Year

DRUGS (4)
  1. VYXEOS [Suspect]
     Active Substance: CYTARABINE\DAUNORUBICIN
     Indication: ACUTE MYELOID LEUKAEMIA
     Dosage: 1ST INDUCTION VYXEOS LIPOSOMAL
     Dates: start: 202003, end: 2020
  2. VYXEOS [Suspect]
     Active Substance: CYTARABINE\DAUNORUBICIN
     Dosage: 2ND CONSOLIDATION VYXEOS LIPOSOMAL
     Dates: start: 202009
  3. VYXEOS [Suspect]
     Active Substance: CYTARABINE\DAUNORUBICIN
     Dosage: 2ND INDUCTION VYXEOS LIPOSOMAL
     Dates: start: 202005, end: 2020
  4. VYXEOS [Suspect]
     Active Substance: CYTARABINE\DAUNORUBICIN
     Dosage: 1ST CONSOLIDATION WITH VYXEOS LIPOSOMAL
     Dates: start: 202007, end: 2020

REACTIONS (4)
  - Neutropenic sepsis [Unknown]
  - Staphylococcal sepsis [Unknown]
  - Catheter site infection [Unknown]
  - Pyrexia [Unknown]

NARRATIVE: CASE EVENT DATE: 202003
